FAERS Safety Report 5332282-6 (Version None)
Quarter: 2007Q2

REPORT INFORMATION
  Report Type: 
  Country: None (occurrence: None)
  Receive Date: 20070523
  Receipt Date: 20070511
  Transmission Date: 20071010
  Serious: Yes (Other)
  Sender: FDA-Public Use
  Company Number: US-BAYER-200711511BWH

PATIENT
  Age: 51 Year
  Sex: Female
  Weight: 52 kg

DRUGS (2)
  1. AVELOX [Suspect]
     Indication: UPPER RESPIRATORY TRACT INFECTION
     Route: 048
     Dates: start: 20031101
  2. ATENOLOL [Concomitant]

REACTIONS (5)
  - ABASIA [None]
  - ERYTHEMA [None]
  - FEELING HOT [None]
  - MOBILITY DECREASED [None]
  - SKIN DISCOLOURATION [None]
